FAERS Safety Report 13954836 (Version 1)
Quarter: 2017Q3

REPORT INFORMATION
  Report Type: Spontaneous
  Country: US (occurrence: US)
  Receive Date: 20170911
  Receipt Date: 20170911
  Transmission Date: 20171128
  Serious: No
  Sender: FDA-Public Use
  Company Number: US-BRAINTREE LABORATORIES-160731

PATIENT
  Age: 60 Year
  Sex: Female
  Weight: 83.91 kg

DRUGS (1)
  1. SUPREP BOWEL PREP [Suspect]
     Active Substance: MAGNESIUM SULFATE\POTASSIUM SULFATE\SODIUM SULFATE
     Indication: COLONOSCOPY
     Dosage: {2 X 6 OZ.BOTTLE
     Route: 048
     Dates: start: 20161003, end: 20161004

REACTIONS (11)
  - Nausea [None]
  - Fatigue [None]
  - Asthenia [None]
  - Pain [None]
  - Dizziness [None]
  - Dysuria [None]
  - Muscular weakness [None]
  - Skin warm [None]
  - Feeling cold [None]
  - Headache [None]
  - Palpitations [None]

NARRATIVE: CASE EVENT DATE: 20161003
